FAERS Safety Report 19367584 (Version 1)
Quarter: 2021Q2

REPORT INFORMATION
  Report Type: Report from Study
  Country: CH (occurrence: CH)
  Receive Date: 20210603
  Receipt Date: 20210603
  Transmission Date: 20210717
  Serious: Yes (Hospitalization)
  Sender: FDA-Public Use
  Company Number: CH-PFIZER INC-2021521780

PATIENT
  Age: 57 Year
  Sex: Male
  Weight: 82 kg

DRUGS (8)
  1. TALTZ [Suspect]
     Active Substance: IXEKIZUMAB
     Indication: PSORIATIC ARTHROPATHY
  2. ACIDUM FOLICUM STREULI [Concomitant]
     Active Substance: FOLIC ACID
     Dosage: 5 MG, WEEKLY, 48 H AFTER METHOTREXATE
  3. QUILONORM [LITHIUM CARBONATE] [Concomitant]
     Active Substance: LITHIUM CARBONATE
     Dosage: 12.2 MMOL, 2X/DAY
  4. METHOTREXATE SODIUM. [Suspect]
     Active Substance: METHOTREXATE SODIUM
     Indication: PSORIASIS
     Dosage: 25 MG/ML, WEEKLY EVERY SUNDAY
     Dates: start: 20190606, end: 201908
  5. PAROXETINE. [Concomitant]
     Active Substance: PAROXETINE
     Dosage: 20 MG, 1X/DAY
  6. SOLIAN [Concomitant]
     Active Substance: AMISULPRIDE
     Dosage: 100 MG, 1X/DAY
  7. TALTZ [Suspect]
     Active Substance: IXEKIZUMAB
     Indication: PSORIASIS
     Dosage: 80 MG/ML, EVERY 4 WEEKS
     Route: 058
     Dates: start: 20170515
  8. METHOTREXATE SODIUM. [Suspect]
     Active Substance: METHOTREXATE SODIUM
     Indication: PSORIATIC ARTHROPATHY
     Dosage: 25 MG/ML, WEEKLY EVERY SUNDAY
     Route: 058
     Dates: start: 201909

REACTIONS (1)
  - Oesophagitis [Recovered/Resolved with Sequelae]

NARRATIVE: CASE EVENT DATE: 20210119
